FAERS Safety Report 10110470 (Version 1)
Quarter: 2014Q2

REPORT INFORMATION
  Report Type: Report from Study
  Country: NL (occurrence: NL)
  Receive Date: 20140425
  Receipt Date: 20140425
  Transmission Date: 20141212
  Serious: Yes (Hospitalization)
  Sender: FDA-Public Use
  Company Number: PHHY2014NL050234

PATIENT
  Age: 75 Year
  Sex: Male

DRUGS (1)
  1. ZOMETA [Suspect]
     Indication: PROSTATE CANCER METASTATIC
     Dosage: 4 MG/100 ML, ONCE EVERY 4 WEEKS
     Route: 042

REACTIONS (1)
  - Monoparesis [Not Recovered/Not Resolved]
